FAERS Safety Report 7748973-3 (Version None)
Quarter: 2011Q3

REPORT INFORMATION
  Report Type: 
  Country: None (occurrence: None)
  Receive Date: 20110909
  Receipt Date: 20110902
  Transmission Date: 20111222
  Serious: Yes (Hospitalization)
  Sender: FDA-Public Use
  Company Number: 2009247088

PATIENT
  Age: 42 Year
  Sex: Female
  Weight: 87 kg

DRUGS (7)
  1. CITALOPRAM HYDROBROMIDE [Suspect]
     Indication: SUICIDE ATTEMPT
     Dosage: SMALL AMOUNT, ACCORDING TO9 THE PATIENT, ORAL; 10 MG, 1X/DAY, ORAL
     Route: 048
  2. LAMOTRIGINE [Suspect]
     Indication: SUICIDE ATTEMPT
     Dosage: SMALL AMOUNTS, ACCORDING TO PATIENT, ORAL; ORAL; ORAL
     Route: 048
  3. PROMETHAZINE [Suspect]
     Indication: SUICIDE ATTEMPT
     Dosage: 625 MG, SINGLE, ORAL; 625 MG, SINGLE OVERDOSE, ORAL
     Route: 048
  4. ASPIRIN [Suspect]
     Dosage: ORAL, 75 MG, 1X/DAY
     Route: 048
  5. FRAGMIN [Suspect]
     Indication: OVERDOSE
     Dosage: SEE IMAGE
  6. FRAGMIN [Suspect]
     Indication: DEEP VEIN THROMBOSIS
     Dosage: SEE IMAGE
  7. FRAGMIN [Suspect]
     Indication: EMBOLISM
     Dosage: SEE IMAGE

REACTIONS (7)
  - SOMNOLENCE [None]
  - HAEMOGLOBIN DECREASED [None]
  - ACTIVATED PARTIAL THROMBOPLASTIN TIME PROLONGED [None]
  - MEMORY IMPAIRMENT [None]
  - SUICIDE ATTEMPT [None]
  - MULTIPLE DRUG OVERDOSE INTENTIONAL [None]
  - INJECTION SITE HAEMORRHAGE [None]
